FAERS Safety Report 16945452 (Version 1)
Quarter: 2019Q4

REPORT INFORMATION
  Report Type: Spontaneous
  Country: US (occurrence: US)
  Receive Date: 20190830
  Receipt Date: 20190830
  Transmission Date: 20200122
  Serious: No
  Sender: FDA-Public Use
  Company Number: None

PATIENT
  Age: 79 Year
  Sex: Female

DRUGS (2)
  1. TREMFYA [Suspect]
     Active Substance: GUSELKUMAB
     Indication: DERMATITIS ATOPIC
     Route: 058
     Dates: start: 201908
  2. TREMFYA [Suspect]
     Active Substance: GUSELKUMAB
     Indication: PSORIASIS
     Route: 058
     Dates: start: 201908

REACTIONS (8)
  - Nasopharyngitis [None]
  - Chest pain [None]
  - Fatigue [None]
  - Arthralgia [None]
  - Back pain [None]
  - Vomiting [None]
  - Musculoskeletal pain [None]
  - Diarrhoea [None]
